FAERS Safety Report 9457783 (Version 1)
Quarter: 2013Q3

REPORT INFORMATION
  Report Type: Spontaneous
  Country: FR (occurrence: FR)
  Receive Date: 20130814
  Receipt Date: 20130814
  Transmission Date: 20140515
  Serious: Yes (Life-Threatening, Hospitalization)
  Sender: FDA-Public Use
  Company Number: PHHY2013FR085941

PATIENT
  Age: 83 Year
  Sex: Male
  Weight: 71 kg

DRUGS (11)
  1. FRACTAL [Suspect]
     Dosage: UNK UKN, UNK
     Route: 048
  2. TRAMADOL [Interacting]
     Indication: BACK PAIN
     Dosage: 3 DF, QD (1/ DAY)
     Dates: start: 20110409, end: 20110426
  3. PREVISCAN [Interacting]
     Indication: THROMBOSIS
     Dosage: 1 DF, DAILY
     Route: 048
     Dates: end: 20110427
  4. PREVISCAN [Interacting]
     Dosage: UNK UKN, UNK
  5. STAGID [Suspect]
     Indication: TYPE 2 DIABETES MELLITUS
     Dosage: 700 MG, DAILY
     Dates: start: 20110308, end: 20110427
  6. DIAMICRON [Suspect]
     Indication: TYPE 2 DIABETES MELLITUS
     Dosage: UNK UKN, UNK
     Dates: end: 20110427
  7. SITAGLIPTIN PHOSPHATE [Suspect]
     Indication: TYPE 2 DIABETES MELLITUS
     Dosage: 100 MG, QD
     Route: 048
     Dates: start: 20091207, end: 20110427
  8. SITAGLIPTIN PHOSPHATE [Suspect]
     Dosage: 100 MG, QD
     Route: 048
     Dates: start: 20110906
  9. LANTUS [Concomitant]
     Indication: TYPE 2 DIABETES MELLITUS
     Dosage: UNK UKN, UNK
     Dates: start: 20110427
  10. SITAGLIPTIN METFORMIN [Concomitant]
     Dosage: UNK UKN, UNK
  11. SITAGLIPTIN METFORMIN [Concomitant]
     Dosage: (1000 MG-50 MG)
     Dates: start: 20111201

REACTIONS (3)
  - Cerebral haemorrhage [Unknown]
  - International normalised ratio increased [Unknown]
  - Drug interaction [Unknown]
